FAERS Safety Report 7041333-2 (Version None)
Quarter: 2010Q4

REPORT INFORMATION
  Report Type: 
  Country: None (occurrence: None)
  Receive Date: 20101013
  Receipt Date: 20100909
  Transmission Date: 20110411
  Serious: No
  Sender: FDA-Public Use
  Company Number: US-BAUSCH-2010BL005082

PATIENT
  Age: 67 Year
  Sex: Female

DRUGS (2)
  1. ZIRGAN [Suspect]
     Indication: ULCERATIVE KERATITIS
     Route: 047
     Dates: start: 20100902
  2. OFLOXACIN [Concomitant]
     Indication: EYE INFECTION
     Route: 047
     Dates: start: 20100902

REACTIONS (1)
  - VISION BLURRED [None]
